FAERS Safety Report 5228685-0 (Version None)
Quarter: 2007Q1

REPORT INFORMATION
  Report Type: 
  Country: None (occurrence: None)
  Receive Date: 20070205
  Receipt Date: 20070126
  Transmission Date: 20070707
  Serious: Yes (Other)
  Sender: FDA-Public Use
  Company Number: PL-GLAXOSMITHKLINE-B0456879B

PATIENT

DRUGS (1)
  1. AUGMENTIN '125' [Suspect]
     Dosage: 1.2G THREE TIMES PER DAY
     Dates: start: 20070122, end: 20070122

REACTIONS (4)
  - ASPHYXIA [None]
  - CAESAREAN SECTION [None]
  - DRUG EXPOSURE DURING PREGNANCY [None]
  - FOETAL DISORDER [None]
